FAERS Safety Report 23851580 (Version 1)
Quarter: 2024Q2

REPORT INFORMATION
  Report Type: Spontaneous
  Country: GB (occurrence: GB)
  Receive Date: 20240514
  Receipt Date: 20240514
  Transmission Date: 20240715
  Serious: Yes (Other)
  Sender: FDA-Public Use
  Company Number: None

PATIENT
  Age: 38 Year
  Sex: Female
  Weight: 59 kg

DRUGS (14)
  1. TRIMETHOPRIM [Suspect]
     Active Substance: TRIMETHOPRIM
     Route: 065
     Dates: start: 20240220, end: 20240227
  2. FERROUS SULFATE [Concomitant]
     Active Substance: FERROUS SULFATE
     Dates: start: 20240425
  3. MORPHINE SULFATE [Concomitant]
     Active Substance: MORPHINE SULFATE
     Dosage: TIME INTERVAL: AS NECESSARY: 2.5-5MLS 4 HOURLY WHEN REQUIRED FOR BREAK THRU ...
     Dates: start: 20231227
  4. FLUOXETINE [Concomitant]
     Active Substance: FLUOXETINE HYDROCHLORIDE
     Dates: start: 20231030
  5. METHOTREXATE [Concomitant]
     Active Substance: METHOTREXATE
  6. CEPHALEXIN [Concomitant]
     Active Substance: CEPHALEXIN
     Dosage: FOR 7 DAYS ONLY
     Dates: start: 20240405, end: 20240412
  7. ISOPROPYL MYRISTATE\MINERAL OIL [Concomitant]
     Active Substance: ISOPROPYL MYRISTATE\MINERAL OIL
     Dosage: TIME INTERVAL: AS NECESSARY: USE AS NEEDED AND AS A SOAP SUBSTITUTE
     Dates: start: 20231030
  8. COCODAMOL [Concomitant]
     Active Substance: ACETAMINOPHEN\CODEINE PHOSPHATE
     Dosage: TIME INTERVAL: AS NECESSARY: 1- 2 WHEN REQUIRED, UP TO A MAXIMUM OF 8 TABLET...
     Dates: start: 20231030
  9. FOLIC ACID [Concomitant]
     Active Substance: FOLIC ACID
     Dosage: TAKE ONE DAILY EXCEPT ON METHOTREXATE DAYS
     Dates: start: 20231030
  10. SUMATRIPTAN [Concomitant]
     Active Substance: SUMATRIPTAN
     Dosage: ONE AT THE START OF MIGRAINE, CAN REPEAT ONE AF...
     Dates: start: 20231030
  11. LEVOTHYROXINE [Concomitant]
     Active Substance: LEVOTHYROXINE\LEVOTHYROXINE SODIUM
     Dosage: EACH MORNING
     Dates: start: 20231030
  12. UNSPECIFIED INGREDIENT [Concomitant]
     Active Substance: UNSPECIFIED INGREDIENT
     Dosage: USE AS DIRECTED
     Dates: start: 20231030
  13. CALCIPOTRIENE [Concomitant]
     Active Substance: CALCIPOTRIENE
     Dosage: APPLY TO PATCHES, CAN BE USED ON SCA...
     Dates: start: 20231030
  14. POTASSIUM BICARBONATE\SODIUM ALGINATE [Concomitant]
     Active Substance: POTASSIUM BICARBONATE\SODIUM ALGINATE
     Dosage: TIME INTERVAL: AS NECESSARY: 5ML WHEN REQUIRED 10 ML AT NIGHT
     Dates: start: 20231030

REACTIONS (1)
  - Pancytopenia [Recovering/Resolving]
